FAERS Safety Report 21794568 (Version 1)
Quarter: 2022Q4

REPORT INFORMATION
  Report Type: Spontaneous
  Country: US (occurrence: None)
  Receive Date: 20221227
  Receipt Date: 20221227
  Transmission Date: 20230112
  Serious: No
  Sender: FDA-Public Use
  Company Number: None

PATIENT
  Sex: Female

DRUGS (2)
  1. DEVICE [Suspect]
     Active Substance: DEVICE
     Indication: Pulmonary arterial hypertension
     Dosage: OTHER QUANTITY : 15NG/KG/MIN;?OTHER FREQUENCY : CONTINUOUS;?
     Route: 042
     Dates: start: 20201229
  2. EPOPROSTENOL [Suspect]
     Active Substance: EPOPROSTENOL

REACTIONS (4)
  - Incorrect dose administered by device [None]
  - Pulmonary arterial hypertension [None]
  - Device alarm issue [None]
  - Product quality issue [None]
